FAERS Safety Report 18130739 (Version 1)
Quarter: 2020Q3

REPORT INFORMATION
  Report Type: Spontaneous
  Country: CA (occurrence: CA)
  Receive Date: 20200810
  Receipt Date: 20200810
  Transmission Date: 20201103
  Serious: Yes (Hospitalization)
  Sender: FDA-Public Use
  Company Number: CA-CANTON LABORATORIES, LLC-2088412

PATIENT
  Age: 69 Year
  Sex: Female

DRUGS (15)
  1. NAPROSYN [Suspect]
     Active Substance: NAPROXEN
     Indication: PRODUCT USED FOR UNKNOWN INDICATION
     Route: 065
  2. CELEBREX [Suspect]
     Active Substance: CELECOXIB
     Route: 065
  3. CORTISONE [Suspect]
     Active Substance: CORTISONE
     Route: 048
  4. METHOTREXATE. [Suspect]
     Active Substance: METHOTREXATE
     Route: 048
  5. SIMPONI [Suspect]
     Active Substance: GOLIMUMAB
     Route: 058
  6. CARDIZEM CD [Suspect]
     Active Substance: DILTIAZEM HYDROCHLORIDE
     Route: 048
  7. DILTIAZEM. [Concomitant]
     Active Substance: DILTIAZEM
     Route: 065
  8. ENBREL [Suspect]
     Active Substance: ETANERCEPT
     Route: 048
  9. METHOTREXATE. [Suspect]
     Active Substance: METHOTREXATE
     Route: 048
  10. APO?PREDNISONE [Suspect]
     Active Substance: PREDNISONE
     Route: 065
  11. CIMZIA [Suspect]
     Active Substance: CERTOLIZUMAB PEGOL
     Route: 058
  12. ORENCIA [Suspect]
     Active Substance: ABATACEPT
     Route: 042
  13. DESOXIMETASONE. [Suspect]
     Active Substance: DESOXIMETASONE
     Route: 048
  14. PREDNISONE. [Suspect]
     Active Substance: PREDNISONE
     Route: 065
  15. CORTISONE ACETATE. [Suspect]
     Active Substance: CORTISONE ACETATE
     Route: 061

REACTIONS (13)
  - Paraesthesia [Not Recovered/Not Resolved]
  - Hypoaesthesia [Unknown]
  - Pain in extremity [Unknown]
  - Infection [Not Recovered/Not Resolved]
  - Atrial fibrillation [Not Recovered/Not Resolved]
  - Foot deformity [Not Recovered/Not Resolved]
  - Nephrolithiasis [Not Recovered/Not Resolved]
  - Pulmonary congestion [Unknown]
  - Drug ineffective [Unknown]
  - Respiratory tract congestion [Not Recovered/Not Resolved]
  - Nerve injury [Not Recovered/Not Resolved]
  - Contraindicated product administered [Unknown]
  - Hypersensitivity [Unknown]
